FAERS Safety Report 6159616-7 (Version None)
Quarter: 2009Q2

REPORT INFORMATION
  Report Type: 
  Country: None (occurrence: None)
  Receive Date: 20090415
  Receipt Date: 20090415
  Transmission Date: 20091009
  Serious: No
  Sender: FDA-Public Use
  Company Number: None

PATIENT
  Age: 77 Year
  Sex: Male
  Weight: 97 kg

DRUGS (1)
  1. WARFARIN SODIUM [Suspect]
     Dosage: 7.5 MG EVERY DAY PO
     Route: 048
     Dates: start: 20081028, end: 20090324

REACTIONS (1)
  - HAEMORRHAGE [None]
